FAERS Safety Report 7325910-7 (Version None)
Quarter: 2011Q1

REPORT INFORMATION
  Report Type: 
  Country: None (occurrence: None)
  Receive Date: 20110302
  Receipt Date: 20110218
  Transmission Date: 20110831
  Serious: Yes (Hospitalization)
  Sender: FDA-Public Use
  Company Number: JP-SANOFI-AVENTIS-2011SA010631

PATIENT
  Age: 62 Year
  Sex: Male

DRUGS (11)
  1. CALCIUM LEVOFOLINATE [Suspect]
     Route: 042
     Dates: start: 20101203, end: 20101203
  2. 5-FU [Suspect]
     Indication: RECTAL CANCER METASTATIC
     Route: 041
     Dates: start: 20100714, end: 20100714
  3. 5-FU [Suspect]
     Route: 042
     Dates: start: 20101203, end: 20101203
  4. ELPLAT [Suspect]
     Indication: RECTAL CANCER METASTATIC
     Route: 041
     Dates: start: 20100714, end: 20100714
  5. ELPLAT [Suspect]
     Route: 041
     Dates: start: 20101119, end: 20101119
  6. CALCIUM LEVOFOLINATE [Suspect]
     Indication: RECTAL CANCER METASTATIC
     Route: 042
     Dates: start: 20100714, end: 20100714
  7. DEXAMETHASONE [Concomitant]
  8. AVASTIN [Suspect]
     Route: 041
     Dates: start: 20101203, end: 20101203
  9. 5-FU [Suspect]
     Route: 041
     Dates: start: 20100827, end: 20100827
  10. AVASTIN [Suspect]
     Indication: RECTAL CANCER METASTATIC
     Route: 041
     Dates: start: 20100807, end: 20100807
  11. 5-FU [Suspect]
     Route: 040
     Dates: start: 20100827, end: 20100827

REACTIONS (2)
  - GASTROINTESTINAL PERFORATION [None]
  - RECTAL PERFORATION [None]
